FAERS Safety Report 24970182 (Version 1)
Quarter: 2025Q1

REPORT INFORMATION
  Report Type: Spontaneous
  Country: FR (occurrence: FR)
  Receive Date: 20250214
  Receipt Date: 20250214
  Transmission Date: 20250408
  Serious: Yes (Hospitalization)
  Sender: RANBAXY
  Company Number: FR-AFSSAPS-PA2023001708

PATIENT
  Age: 63 Year
  Sex: Male
  Weight: 81 kg

DRUGS (9)
  1. AMLODIPINE [Suspect]
     Active Substance: AMLODIPINE BESYLATE
     Indication: Hypertension
     Route: 065
     Dates: start: 20230713
  2. BISOPROLOL [Suspect]
     Active Substance: BISOPROLOL
     Indication: Product used for unknown indication
     Route: 065
     Dates: start: 20230626
  3. AMOXICILLIN [Suspect]
     Active Substance: AMOXICILLIN
     Indication: Meningitis
     Dosage: 16 GRAM, DAILY
     Route: 040
     Dates: start: 20230621, end: 20230729
  4. FLUCONAZOLE [Suspect]
     Active Substance: FLUCONAZOLE
     Indication: Meningitis
     Dosage: 500 MILLIGRAM, DAILY
     Route: 040
     Dates: start: 20230629, end: 20230728
  5. FLUCONAZOLE [Suspect]
     Active Substance: FLUCONAZOLE
     Dosage: 400 MILLIGRAM, DAILY
     Route: 065
     Dates: start: 20230730
  6. ORNIDAZOLE [Suspect]
     Active Substance: ORNIDAZOLE
     Indication: Meningitis
     Dosage: 1 GRAM, BID
     Route: 040
     Dates: start: 20230618
  7. TROPICAMIDE [Suspect]
     Active Substance: TROPICAMIDE
     Indication: Ocular hypertension
     Route: 031
     Dates: start: 20230620
  8. DORZOLAMIDE HYDROCHLORIDE\TIMOLOL MALEATE [Suspect]
     Active Substance: DORZOLAMIDE HYDROCHLORIDE\TIMOLOL MALEATE
     Indication: Ocular hypertension
     Dosage: 1 GTT DROPS, BID
     Route: 031
     Dates: start: 20230620
  9. ALFUZOSIN [Suspect]
     Active Substance: ALFUZOSIN
     Indication: Benign prostatic hyperplasia
     Route: 031
     Dates: start: 20230620

REACTIONS (1)
  - Acute kidney injury [Recovered/Resolved]

NARRATIVE: CASE EVENT DATE: 20230729
